FAERS Safety Report 9471309 (Version 2)
Quarter: 2013Q3

REPORT INFORMATION
  Report Type: Spontaneous
  Country: US (occurrence: US)
  Receive Date: 20130822
  Receipt Date: 20130917
  Transmission Date: 20140515
  Serious: No
  Sender: FDA-Public Use
  Company Number: US-009507513-1308USA008385

PATIENT
  Sex: Male

DRUGS (1)
  1. DR. SCHOLLS CLEAR AWAY WART REMOVER [Suspect]
     Indication: SKIN PAPILLOMA
     Dosage: UNK, UNKNOWN
     Route: 061
     Dates: start: 201305

REACTIONS (3)
  - Skin disorder [Unknown]
  - Condition aggravated [Unknown]
  - Application site pain [Unknown]
